FAERS Safety Report 6833837-X (Version None)
Quarter: 2010Q3

REPORT INFORMATION
  Report Type: 
  Country: None (occurrence: None)
  Receive Date: 20100712
  Receipt Date: 20070404
  Transmission Date: 20110219
  Serious: No
  Sender: FDA-Public Use
  Company Number: US-PFIZER INC-2007028349

PATIENT
  Sex: Female
  Weight: 48.99 kg

DRUGS (3)
  1. CHANTIX [Suspect]
     Indication: SMOKING CESSATION THERAPY
     Dates: start: 20070401
  2. ORTHO EVRA [Concomitant]
     Indication: ENDOCRINE DISORDER
  3. CORTEF [Concomitant]
     Indication: ADRENOGENITAL SYNDROME

REACTIONS (3)
  - FLUID RETENTION [None]
  - SWELLING [None]
  - WEIGHT INCREASED [None]
